FAERS Safety Report 7388706-6 (Version None)
Quarter: 2011Q2

REPORT INFORMATION
  Report Type: 
  Country: None (occurrence: None)
  Receive Date: 20110401
  Receipt Date: 20110324
  Transmission Date: 20111010
  Serious: No
  Sender: FDA-Public Use
  Company Number: US-US-EMD SERONO, INC.-231885J10USA

PATIENT
  Sex: Female

DRUGS (5)
  1. NEURONTIN [Concomitant]
  2. CYMBALTA [Concomitant]
  3. WELLBUTRIN [Concomitant]
  4. LYRICA [Concomitant]
  5. REBIF [Suspect]
     Indication: MULTIPLE SCLEROSIS
     Route: 058
     Dates: start: 20030224, end: 20090801

REACTIONS (1)
  - NO ADVERSE EVENT [None]
